FAERS Safety Report 17316277 (Version 1)
Quarter: 2020Q1

REPORT INFORMATION
  Report Type: Spontaneous
  Country: FR (occurrence: FR)
  Receive Date: 20200124
  Receipt Date: 20200124
  Transmission Date: 20200409
  Serious: Yes (Hospitalization)
  Sender: FDA-Public Use
  Company Number: FR-MYLANLABS-2020M1007050

PATIENT
  Age: 90 Year
  Sex: Female

DRUGS (11)
  1. MACROGOL [Suspect]
     Active Substance: POLYETHYLENE GLYCOLS
     Indication: CONSTIPATION
     Dosage: 1 DOSAGE FORM, QD
     Route: 048
  2. TEMESTA                            /00273201/ [Suspect]
     Active Substance: LORAZEPAM
     Indication: DEPRESSION
     Dosage: 1 MILLIGRAM, QD
     Route: 048
  3. ELIQUIS [Concomitant]
     Active Substance: APIXABAN
     Dosage: UNK
  4. TRIMEBUTINE [Concomitant]
     Active Substance: TRIMEBUTINE
     Dosage: UNK
  5. AMIODARONE [Suspect]
     Active Substance: AMIODARONE
     Indication: ATRIAL FIBRILLATION
     Dosage: 0.5 DOSAGE FORM, QD
     Route: 048
  6. ALDACTONE [Suspect]
     Active Substance: SPIRONOLACTONE
     Indication: HYPERTENSION
     Dosage: 50 MILLIGRAM, QD
     Route: 048
  7. ESCITALOPRAM [Suspect]
     Active Substance: ESCITALOPRAM OXALATE
     Indication: DEPRESSION
     Dosage: POSOLOGIE INCONNUE
     Route: 048
     Dates: end: 20190902
  8. DICLOFENAC [Concomitant]
     Active Substance: DICLOFENAC
     Dosage: UNK
  9. PANTOPRAZOLE [Suspect]
     Active Substance: PANTOPRAZOLE
     Indication: PRODUCT USED FOR UNKNOWN INDICATION
     Dosage: 20 MILLIGRAM, QD
     Route: 048
  10. DOLIPRANE [Concomitant]
     Active Substance: ACETAMINOPHEN
     Dosage: UNK
  11. ZOLPIDEM [Concomitant]
     Active Substance: ZOLPIDEM TARTRATE
     Dosage: UNK

REACTIONS (3)
  - Hyponatraemia [Recovered/Resolved]
  - Fall [Recovered/Resolved]
  - Head injury [Recovered/Resolved]

NARRATIVE: CASE EVENT DATE: 20190902
